FAERS Safety Report 5460573-7 (Version None)
Quarter: 2007Q3

REPORT INFORMATION
  Report Type: 
  Country: None (occurrence: None)
  Receive Date: 20070919
  Receipt Date: 20070910
  Transmission Date: 20080115
  Serious: Yes (Hospitalization, Other)
  Sender: FDA-Public Use
  Company Number: JP-PFIZER INC-2007066028

PATIENT
  Sex: Female
  Weight: 29 kg

DRUGS (2)
  1. GENOTROPIN [Suspect]
     Indication: BODY HEIGHT BELOW NORMAL
     Dosage: TEXT:4.4MG/WEEK-FREQ:FREQUENCY: QD
     Route: 058
  2. GENOTROPIN [Suspect]
     Dosage: TEXT:4.8MG/WEEK
     Route: 058
     Dates: start: 20070425, end: 20070805

REACTIONS (1)
  - PANCREATITIS ACUTE [None]
